FAERS Safety Report 7943624-7 (Version None)
Quarter: 2011Q4

REPORT INFORMATION
  Report Type: 
  Country: None (occurrence: None)
  Receive Date: 20111128
  Receipt Date: 20111122
  Transmission Date: 20120403
  Serious: Yes (Death, Other)
  Sender: FDA-Public Use
  Company Number: US-AMGEN-USASP2011062161

PATIENT
  Age: 56 Year
  Sex: Male

DRUGS (2)
  1. NPLATE [Suspect]
     Indication: THROMBOCYTOPENIA
     Dates: start: 20091029
  2. ANTINEOPLASTIC AGENTS [Concomitant]
     Indication: NEOPLASM MALIGNANT

REACTIONS (2)
  - DEATH [None]
  - NEOPLASM MALIGNANT [None]
